FAERS Safety Report 25265635 (Version 2)
Quarter: 2025Q4

REPORT INFORMATION
  Report Type: Report from Study
  Country: GB (occurrence: GB)
  Receive Date: 20250503
  Receipt Date: 20251110
  Transmission Date: 20260118
  Serious: Yes (Death, Hospitalization)
  Sender: CELLTRION
  Company Number: GB-CELLTRION INC.-2025GB012900

PATIENT

DRUGS (2)
  1. ADALIMUMAB-AATY [Suspect]
     Active Substance: ADALIMUMAB-AATY
     Indication: Psoriasis
     Dosage: YUFLYMA 40MG FOR INJECTION PENS INJECT ONE PRE-FILLED PEN EVERY TWO WEEKS
     Route: 058
     Dates: start: 202405, end: 202510
  2. ADALIMUMAB-AATY [Suspect]
     Active Substance: ADALIMUMAB-AATY

REACTIONS (2)
  - Death [Fatal]
  - Dialysis [Unknown]
